FAERS Safety Report 21469320 (Version 1)
Quarter: 2022Q4

REPORT INFORMATION
  Report Type: Spontaneous
  Country: ES (occurrence: None)
  Receive Date: 20221018
  Receipt Date: 20221018
  Transmission Date: 20230113
  Serious: Yes (Hospitalization)
  Sender: FDA-Public Use
  Company Number: ES-ROCHE-2745745

PATIENT
  Age: 29 Year
  Sex: Male
  Weight: 85 kg

DRUGS (2)
  1. HEMLIBRA [Suspect]
     Active Substance: EMICIZUMAB-KXWH
     Indication: Factor VIII deficiency
     Dosage: ON 22/DEC/2020, 225 MG OF EMICIZUMAB WERE ADMINISTERED. ON 29/DEC/2020, 225 MG WERE ADMINISTERED. ON
     Route: 058
     Dates: start: 20201215
  2. ELOCTA [Concomitant]
     Active Substance: EFMOROCTOCOG ALFA

REACTIONS (6)
  - Ill-defined disorder [Unknown]
  - Drug specific antibody present [Unknown]
  - Haematuria [Unknown]
  - Injection site reaction [Recovering/Resolving]
  - Ecchymosis [Recovered/Resolved]
  - Drug ineffective [Unknown]

NARRATIVE: CASE EVENT DATE: 20201215
